FAERS Safety Report 9636803 (Version 2)
Quarter: 2013Q4

REPORT INFORMATION
  Report Type: Spontaneous
  Country: US (occurrence: US)
  Receive Date: 20131022
  Receipt Date: 20131113
  Transmission Date: 20140711
  Serious: No
  Sender: FDA-Public Use
  Company Number: US-009507513-1310USA008849

PATIENT
  Sex: Female
  Weight: 41.72 kg

DRUGS (3)
  1. JANUVIA [Suspect]
     Indication: BLOOD GLUCOSE ABNORMAL
     Dosage: UNK
     Route: 048
     Dates: start: 201305, end: 201307
  2. ZOCOR [Suspect]
     Indication: BLOOD CHOLESTEROL INCREASED
     Dosage: 20 MG, UNK
     Route: 048
     Dates: start: 2008, end: 201309
  3. METFORMIN [Concomitant]
     Indication: BLOOD GLUCOSE ABNORMAL
     Dosage: TOTAL DAILY DOSE 2000
     Route: 048

REACTIONS (4)
  - Perivascular dermatitis [Recovering/Resolving]
  - Dermatitis [Recovering/Resolving]
  - Autoimmune disorder [Unknown]
  - Dermatomyositis [Not Recovered/Not Resolved]
